FAERS Safety Report 16422584 (Version 1)
Quarter: 2019Q2

REPORT INFORMATION
  Report Type: Spontaneous
  Country: US (occurrence: US)
  Receive Date: 20190612
  Receipt Date: 20190612
  Transmission Date: 20190711
  Serious: No
  Sender: FDA-Public Use
  Company Number: US-KEDRION-2018-000188

PATIENT

DRUGS (1)
  1. RHOGAM ULTRA-FILTERED PLUS [Suspect]
     Active Substance: HUMAN RHO(D) IMMUNE GLOBULIN
     Indication: PREGNANCY
     Dosage: 1 DF, UNK

REACTIONS (1)
  - Pyrexia [Unknown]
